FAERS Safety Report 24013906 (Version 1)
Quarter: 2024Q2

REPORT INFORMATION
  Report Type: Report from Study
  Country: US (occurrence: None)
  Receive Date: 20240626
  Receipt Date: 20240626
  Transmission Date: 20240716
  Serious: Yes (Hospitalization)
  Sender: FDA-Public Use
  Company Number: 2024A141320

PATIENT
  Sex: Female

DRUGS (1)
  1. TEZSPIRE [Suspect]
     Active Substance: TEZEPELUMAB-EKKO

REACTIONS (6)
  - Cough [Unknown]
  - Sputum discoloured [Unknown]
  - Chest discomfort [Unknown]
  - Balance disorder [Unknown]
  - Delirium [Unknown]
  - Fall [Unknown]
